FAERS Safety Report 15119871 (Version 1)
Quarter: 2018Q3

REPORT INFORMATION
  Report Type: Spontaneous
  Country: FR (occurrence: FR)
  Receive Date: 20180709
  Receipt Date: 20180709
  Transmission Date: 20181010
  Serious: Yes (Other)
  Sender: FDA-Public Use
  Company Number: FR-ASTELLAS-2018US030398

PATIENT
  Age: 81 Year
  Sex: Male

DRUGS (3)
  1. OXYCODONE [Interacting]
     Active Substance: OXYCODONE
     Indication: PAIN
     Dosage: 5 MG, TWICE DAILY (5 MG IN THE MORNING AND 5 MG IN THE EVENING)
     Route: 065
  2. XTANDI [Suspect]
     Active Substance: ENZALUTAMIDE
     Indication: PROSTATE CANCER
     Route: 065
     Dates: start: 201804
  3. OXYCODONE [Interacting]
     Active Substance: OXYCODONE
     Route: 065

REACTIONS (3)
  - Drug interaction [Unknown]
  - Malignant neoplasm progression [Unknown]
  - Pain [Not Recovered/Not Resolved]

NARRATIVE: CASE EVENT DATE: 2018
